FAERS Safety Report 24135577 (Version 2)
Quarter: 2024Q3

REPORT INFORMATION
  Report Type: Spontaneous
  Country: AU (occurrence: AU)
  Receive Date: 20240725
  Receipt Date: 20240911
  Transmission Date: 20241017
  Serious: Yes (Death, Other)
  Sender: BRISTOL MYERS SQUIBB
  Company Number: AU-BRISTOL-MYERS SQUIBB COMPANY-2024-116919

PATIENT
  Age: 89 Year
  Sex: Male

DRUGS (1)
  1. POMALYST [Suspect]
     Active Substance: POMALIDOMIDE
     Indication: Plasma cell myeloma

REACTIONS (2)
  - Intestinal obstruction [Fatal]
  - Intestinal perforation [Fatal]
